FAERS Safety Report 12539056 (Version 2)
Quarter: 2016Q3

REPORT INFORMATION
  Report Type: Report from Study
  Country: FR (occurrence: FR)
  Receive Date: 20160708
  Receipt Date: 20160818
  Transmission Date: 20161109
  Serious: Yes (Hospitalization, Other)
  Sender: FDA-Public Use
  Company Number: FR-ACTELION-A-CH2015-120231

PATIENT
  Age: 3 Year
  Sex: Male

DRUGS (4)
  1. ZAVESCA [Suspect]
     Active Substance: MIGLUSTAT
     Dosage: 50 MG, BID
     Route: 048
     Dates: start: 2012
  2. ZAVESCA [Suspect]
     Active Substance: MIGLUSTAT
     Dosage: 200 MG, QD
     Route: 048
     Dates: end: 20160112
  3. ZAVESCA [Suspect]
     Active Substance: MIGLUSTAT
     Dosage: 200 MG, QD
     Route: 048
     Dates: start: 20160315, end: 20160320
  4. ZAVESCA [Suspect]
     Active Substance: MIGLUSTAT
     Indication: NIEMANN-PICK DISEASE
     Dosage: 50 MG, TID
     Route: 048
     Dates: start: 20111015, end: 2012

REACTIONS (19)
  - Sleep disorder due to a general medical condition [Unknown]
  - Bronchitis [Recovered/Resolved with Sequelae]
  - Abdominal pain [Unknown]
  - Gastroenteritis [Recovered/Resolved with Sequelae]
  - Hypoxia [Recovered/Resolved with Sequelae]
  - Infectious mononucleosis [Recovered/Resolved with Sequelae]
  - Diarrhoea [Recovered/Resolved]
  - Oral candidiasis [Recovered/Resolved with Sequelae]
  - Abdominal distension [Recovered/Resolved]
  - Neurological decompensation [Unknown]
  - Respiratory disorder [Unknown]
  - Bronchiolitis [Recovered/Resolved with Sequelae]
  - Niemann-Pick disease [Unknown]
  - Hepatic vein occlusion [Unknown]
  - Intestinal obstruction [Recovered/Resolved]
  - Malnutrition [Unknown]
  - Disease progression [Unknown]
  - Infection [Unknown]
  - Seizure [Recovered/Resolved]

NARRATIVE: CASE EVENT DATE: 2012
